FAERS Safety Report 8231100-6 (Version None)
Quarter: 2012Q1

REPORT INFORMATION
  Report Type: 
  Country: None (occurrence: None)
  Receive Date: 20120322
  Receipt Date: 20120322
  Transmission Date: 20120608
  Serious: Yes (Hospitalization)
  Sender: FDA-Public Use
  Company Number: None

PATIENT
  Age: 74 Year
  Sex: Female
  Weight: 82.4 kg

DRUGS (2)
  1. PRADAXA [Suspect]
     Indication: ATRIAL FIBRILLATION
     Dates: start: 20120210, end: 20120320
  2. ACTIVASE [Concomitant]
     Indication: CEREBROVASCULAR ACCIDENT
     Dates: start: 20120318, end: 20120318

REACTIONS (1)
  - HAEMORRHAGIC TRANSFORMATION STROKE [None]
